FAERS Safety Report 5327639-3 (Version None)
Quarter: 2007Q2

REPORT INFORMATION
  Report Type: 
  Country: None (occurrence: None)
  Receive Date: 20070517
  Receipt Date: 20070515
  Transmission Date: 20071010
  Serious: Yes (Hospitalization)
  Sender: FDA-Public Use
  Company Number: A0651420A

PATIENT
  Age: 78 Year
  Sex: Male

DRUGS (6)
  1. TYKERB [Suspect]
     Indication: BREAST CANCER
     Dosage: 5TAB PER DAY
     Route: 048
     Dates: start: 20070504, end: 20070512
  2. COUMADIN [Concomitant]
  3. LISINOPRIL [Concomitant]
  4. ALLOPURINOL [Concomitant]
  5. SYNTHROID [Concomitant]
  6. LASIX [Concomitant]

REACTIONS (8)
  - ANAPHYLACTIC REACTION [None]
  - DYSPNOEA [None]
  - MOBILITY DECREASED [None]
  - MOUTH ULCERATION [None]
  - PYREXIA [None]
  - RASH [None]
  - SWELLING [None]
  - SWELLING FACE [None]
